FAERS Safety Report 17149181 (Version 1)
Quarter: 2019Q4

REPORT INFORMATION
  Report Type: Spontaneous
  Country: FR (occurrence: FR)
  Receive Date: 20191213
  Receipt Date: 20191213
  Transmission Date: 20200122
  Serious: Yes (Other)
  Sender: FDA-Public Use
  Company Number: FR-TEVA-2019-FR-1150527

PATIENT
  Age: 47 Year
  Sex: Female

DRUGS (1)
  1. KETOPROFENE [Suspect]
     Active Substance: KETOPROFEN
     Indication: MIGRAINE
     Route: 048
     Dates: start: 20191029, end: 20191029

REACTIONS (2)
  - Angioedema [Recovered/Resolved]
  - Urticaria [Recovered/Resolved]

NARRATIVE: CASE EVENT DATE: 20191029
